FAERS Safety Report 7480805-3 (Version None)
Quarter: 2011Q2

REPORT INFORMATION
  Report Type: 
  Country: None (occurrence: None)
  Receive Date: 20110512
  Receipt Date: 20110512
  Transmission Date: 20111010
  Serious: Yes (Other)
  Sender: FDA-Public Use
  Company Number: None

PATIENT
  Sex: Female
  Weight: 63.5036 kg

DRUGS (2)
  1. DOXYCYCLINE [Suspect]
     Indication: SKIN LESION
     Dates: start: 20110422, end: 20110424
  2. DOXYCYCLINE [Suspect]
     Indication: BASAL CELL CARCINOMA
     Dates: start: 20110422, end: 20110424

REACTIONS (5)
  - HYPERSENSITIVITY [None]
  - MUSCLE SPASMS [None]
  - RESPIRATORY TRACT CONGESTION [None]
  - WHEEZING [None]
  - MOUTH HAEMORRHAGE [None]
